FAERS Safety Report 15083390 (Version 1)
Quarter: 2020Q3

REPORT INFORMATION
  Report Type: Spontaneous
  Country: JP (occurrence: JP)
  Receive Date: 20180628
  Receipt Date: 20180628
  Transmission Date: 20201105
  Serious: Yes (Death)
  Sender: FDA-Public Use
  Company Number: JP-PFIZER INC-2018260503

PATIENT
  Age: 54 Year
  Sex: Female

DRUGS (3)
  1. CERITINIB [Suspect]
     Active Substance: CERITINIB
  2. ALECTINIB. [Suspect]
     Active Substance: ALECTINIB
  3. XALKORI [Suspect]
     Active Substance: CRIZOTINIB
     Route: 048

REACTIONS (3)
  - Death [Fatal]
  - Liver disorder [Unknown]
  - Neoplasm progression [Unknown]
